FAERS Safety Report 10351716 (Version 2)
Quarter: 2014Q3

REPORT INFORMATION
  Report Type: Spontaneous
  Country: DE (occurrence: DE)
  Receive Date: 20140730
  Receipt Date: 20140730
  Transmission Date: 20150326
  Serious: Yes (Other)
  Sender: FDA-Public Use
  Company Number: PHHY2014DE058169

PATIENT
  Age: 57 Year
  Sex: Male

DRUGS (2)
  1. TIMOX [Suspect]
     Active Substance: OXCARBAZEPINE
     Indication: OFF LABEL USE
  2. TIMOX [Suspect]
     Active Substance: OXCARBAZEPINE
     Indication: TRIGEMINAL NEURALGIA
     Dosage: 300 MG, BID
     Route: 048
     Dates: start: 201204, end: 201405

REACTIONS (2)
  - Lichenification [Not Recovered/Not Resolved]
  - Phimosis [Not Recovered/Not Resolved]
